FAERS Safety Report 4894880-3 (Version None)
Quarter: 2006Q1

REPORT INFORMATION
  Report Type: 
  Country: None (occurrence: None)
  Receive Date: 20060130
  Receipt Date: 20050112
  Transmission Date: 20060701
  Serious: No
  Sender: FDA-Public Use
  Company Number: US-BRISTOL-MYERS SQUIBB COMPANY-12822268

PATIENT
  Age: 59 Year
  Sex: Female
  Weight: 76 kg

DRUGS (12)
  1. METFORMIN HCL [Suspect]
     Indication: DIABETES MELLITUS NON-INSULIN-DEPENDENT
     Route: 048
  2. DETROL [Concomitant]
     Dosage: DURATION = 3-4 YEARS
  3. XANAX [Concomitant]
     Dosage: DURATION = ^YEARS^
  4. ACIPHEX [Concomitant]
  5. TOPROL-XL [Concomitant]
  6. PLAVIX [Concomitant]
  7. AMARYL [Concomitant]
  8. LESCOL [Concomitant]
  9. IMDUR [Concomitant]
  10. LISINOPRIL AND HYDROCHLOROTHIAZIDE [Concomitant]
     Dosage: 20/25 MG
  11. LASIX [Concomitant]
  12. POTASSIUM [Concomitant]

REACTIONS (5)
  - BLOOD GLUCOSE INCREASED [None]
  - BLOOD PRESSURE INCREASED [None]
  - CONTUSION [None]
  - GENITAL RASH [None]
  - PRURITUS GENERALISED [None]
